FAERS Safety Report 9350952 (Version 3)
Quarter: 2014Q1

REPORT INFORMATION
  Report Type: Report from Study
  Country: CA (occurrence: CA)
  Receive Date: 20130617
  Receipt Date: 20140108
  Transmission Date: 20141002
  Serious: Yes (Hospitalization)
  Sender: FDA-Public Use
  Company Number: CA-JNJFOC-20130604340

PATIENT
  Sex: Female
  Weight: 49 kg

DRUGS (8)
  1. REMICADE [Suspect]
     Indication: RHEUMATOID ARTHRITIS
     Route: 042
     Dates: start: 20040602
  2. SULPHASALAZINE [Concomitant]
     Route: 065
  3. ZOCOR [Concomitant]
     Route: 065
  4. ALTACE [Concomitant]
     Route: 065
  5. FOSAMAX [Concomitant]
     Route: 065
  6. CALCIUM [Concomitant]
     Route: 065
  7. VITAMIN D [Concomitant]
     Route: 065
  8. FERROMAX [Concomitant]
     Route: 065

REACTIONS (3)
  - Fall [Unknown]
  - Femur fracture [Not Recovered/Not Resolved]
  - Lower limb fracture [Not Recovered/Not Resolved]
